FAERS Safety Report 18472800 (Version 2)
Quarter: 2020Q4

REPORT INFORMATION
  Report Type: Spontaneous
  Country: US (occurrence: US)
  Receive Date: 20201106
  Receipt Date: 20201119
  Transmission Date: 20210114
  Serious: Yes (Hospitalization, Disabling, Other)
  Sender: FDA-Public Use
  Company Number: US-009507513-2011USA000876

PATIENT
  Sex: Female

DRUGS (9)
  1. KEYTRUDA [Suspect]
     Active Substance: PEMBROLIZUMAB
     Indication: LUNG NEOPLASM MALIGNANT
     Dosage: 200 MILLIGRAM, EVERY 21 DAYS; ONLY ONE DOSE RECEIVED
     Route: 042
     Dates: start: 2020, end: 2020
  2. PROVENTIL [Concomitant]
     Active Substance: ALBUTEROL
  3. PROTONIX [Concomitant]
     Active Substance: PANTOPRAZOLE SODIUM
  4. SPIRIVA [Concomitant]
     Active Substance: TIOTROPIUM BROMIDE MONOHYDRATE
  5. SINGULAIR [Concomitant]
     Active Substance: MONTELUKAST SODIUM
     Route: 048
  6. GABAPENTIN. [Concomitant]
     Active Substance: GABAPENTIN
  7. ZOCOR [Concomitant]
     Active Substance: SIMVASTATIN
     Route: 048
  8. SYMBICORT [Concomitant]
     Active Substance: BUDESONIDE\FORMOTEROL FUMARATE DIHYDRATE
  9. ATIVAN [Concomitant]
     Active Substance: LORAZEPAM

REACTIONS (7)
  - Rash [Recovered/Resolved]
  - Rash [Recovering/Resolving]
  - Pyrexia [Recovering/Resolving]
  - Blister [Recovered/Resolved]
  - Lung disorder [Unknown]
  - Pain [Recovering/Resolving]
  - Blister [Recovering/Resolving]

NARRATIVE: CASE EVENT DATE: 2020
